FAERS Safety Report 21324297 (Version 1)
Quarter: 2022Q3

REPORT INFORMATION
  Report Type: Spontaneous
  Country: US (occurrence: US)
  Receive Date: 20220912
  Receipt Date: 20220912
  Transmission Date: 20221027
  Serious: No
  Sender: FDA-Public Use
  Company Number: US-BRISTOL-MYERS SQUIBB COMPANY-2022-104603

PATIENT
  Age: 77 Year
  Sex: Female

DRUGS (1)
  1. REVLIMID [Suspect]
     Active Substance: LENALIDOMIDE
     Indication: Plasma cell myeloma in remission
     Dosage: FREQUENCY- TAKE 1 CAPSULE BY MOUTH WHOLE WITH WATER DAILY. DO NOT BREAK/CHEW OR OPEN
     Route: 048
     Dates: start: 20160627

REACTIONS (1)
  - Treatment noncompliance [Unknown]
